FAERS Safety Report 6773413-0 (Version None)
Quarter: 2010Q2

REPORT INFORMATION
  Report Type: 
  Country: None (occurrence: None)
  Receive Date: 20100616
  Receipt Date: 20100607
  Transmission Date: 20101027
  Serious: Yes (Other)
  Sender: FDA-Public Use
  Company Number: US-ABBOTT-10P-163-0650721-00

PATIENT
  Sex: Female

DRUGS (9)
  1. HUMIRA [Suspect]
     Indication: RHEUMATOID ARTHRITIS
     Dates: start: 20050101
  2. HUMIRA [Suspect]
     Dates: start: 20100608
  3. HUMIRA [Suspect]
     Dates: end: 20090701
  4. CELEBREX [Concomitant]
     Indication: RHEUMATOID ARTHRITIS
     Dosage: DAILY
  5. CHOLESTER [Concomitant]
     Indication: BLOOD CHOLESTEROL INCREASED
  6. ZETIA [Concomitant]
     Indication: BLOOD CHOLESTEROL INCREASED
  7. TRI-CHLOR [Concomitant]
     Indication: HYPERTENSION
  8. MUSCLE RELAXER [Concomitant]
     Indication: DRUG USE FOR UNKNOWN INDICATION
  9. SLEEP AID [Concomitant]
     Indication: DRUG USE FOR UNKNOWN INDICATION

REACTIONS (5)
  - DIZZINESS [None]
  - EYE MOVEMENT DISORDER [None]
  - NERVOUS SYSTEM DISORDER [None]
  - NEUROLOGICAL SYMPTOM [None]
  - RHEUMATOID ARTHRITIS [None]
